FAERS Safety Report 4923866-5 (Version None)
Quarter: 2006Q1

REPORT INFORMATION
  Report Type: 
  Country: None (occurrence: None)
  Receive Date: 20060227
  Receipt Date: 20051019
  Transmission Date: 20060701
  Serious: Yes (Other)
  Sender: FDA-Public Use
  Company Number: US-MERCK-0510USA08304

PATIENT
  Age: 59 Year
  Sex: Female
  Weight: 64 kg

DRUGS (5)
  1. VIOXX [Suspect]
     Indication: ARTHRITIS
     Route: 048
     Dates: start: 20020101, end: 20030101
  2. [THERAPY UNSPECIFIED] [Concomitant]
     Route: 065
  3. ULTRAM [Concomitant]
     Route: 065
  4. PREMARIN [Concomitant]
     Route: 065
  5. PROVERA [Concomitant]
     Route: 065

REACTIONS (3)
  - CEREBROVASCULAR ACCIDENT [None]
  - SPEECH DISORDER [None]
  - VISUAL ACUITY REDUCED [None]
